FAERS Safety Report 23097286 (Version 1)
Quarter: 2023Q4

REPORT INFORMATION
  Report Type: 
  Country: JP (occurrence: JP)
  Receive Date: 20231023
  Receipt Date: 20231023
  Transmission Date: 20240110
  Serious: Yes (Other)
  Sender: FDA-Public Use
  Company Number: JP-JNJFOC-20231049830

PATIENT
  Age: 56 Year
  Sex: Female

DRUGS (2)
  1. RISPERDAL [Suspect]
     Active Substance: RISPERIDONE
     Indication: Product used for unknown indication
     Dosage: DOSE UNKNOWN
     Route: 048
     Dates: start: 200011, end: 200110
  2. BROMPERIDOL [Suspect]
     Active Substance: BROMPERIDOL
     Indication: Product used for unknown indication
     Dosage: DOSE UNKNOWN
     Route: 048
     Dates: start: 200011, end: 200012

REACTIONS (2)
  - Tardive dyskinesia [Unknown]
  - Motor dysfunction [Unknown]
